FAERS Safety Report 7086993-5 (Version None)
Quarter: 2010Q4

REPORT INFORMATION
  Report Type: 
  Country: None (occurrence: None)
  Receive Date: 20101106
  Receipt Date: 20101027
  Transmission Date: 20110411
  Serious: No
  Sender: FDA-Public Use
  Company Number: US-WYE-H17820010

PATIENT
  Sex: Male
  Weight: 77.18 kg

DRUGS (2)
  1. EFFEXOR XR [Suspect]
     Indication: DEPRESSION
     Dosage: UNSPECIFIED
     Dates: start: 20080226, end: 20090529
  2. EFFEXOR XR [Suspect]
     Dosage: ^TAPERED OFF BY TAKING A DOSE EVERY OTHER DAY, THEN EVERY THIRD DAY AND SO ON^
     Dates: end: 20090101

REACTIONS (3)
  - DIZZINESS [None]
  - DRUG WITHDRAWAL SYNDROME [None]
  - HEADACHE [None]
